FAERS Safety Report 8285959-7 (Version None)
Quarter: 2012Q2

REPORT INFORMATION
  Report Type: 
  Country: None (occurrence: None)
  Receive Date: 20120415
  Receipt Date: 20120402
  Transmission Date: 20120825
  Serious: Yes (Other)
  Sender: FDA-Public Use
  Company Number: US-BRISTOL-MYERS SQUIBB COMPANY-16495699

PATIENT
  Age: 9 Year
  Sex: Female

DRUGS (3)
  1. TRIAMCINOLONE ACETONIDE [Suspect]
     Indication: PSORIASIS
     Dosage: PREVIOUS 2 WEEKS 50% OF BOSY SURFACE AREA 2-3TIMES A DAY
     Route: 061
  2. TRIAMCINOLONE ACETONIDE [Suspect]
     Indication: DERMATITIS EXFOLIATIVE
     Dosage: PREVIOUS 2 WEEKS 50% OF BOSY SURFACE AREA 2-3TIMES A DAY
     Route: 061
  3. HYDROCORTISONE [Suspect]
     Route: 048

REACTIONS (2)
  - HYPOTHALAMO-PITUITARY DISORDER [None]
  - CUSHING'S SYNDROME [None]
